FAERS Safety Report 15595339 (Version 4)
Quarter: 2019Q1

REPORT INFORMATION
  Report Type: Report from Study
  Country: US (occurrence: US)
  Receive Date: 20181107
  Receipt Date: 20190316
  Transmission Date: 20190417
  Serious: No
  Sender: FDA-Public Use
  Company Number: PHEH2018US046640

PATIENT
  Age: 43 Year
  Sex: Male

DRUGS (1)
  1. COSENTYX [Suspect]
     Active Substance: SECUKINUMAB
     Indication: PSORIATIC ARTHROPATHY
     Dosage: 150 MG, QMO
     Route: 058
     Dates: start: 20180904

REACTIONS (4)
  - Arthritis [Unknown]
  - Therapeutic response shortened [Unknown]
  - Product administration error [Unknown]
  - Arthralgia [Unknown]

NARRATIVE: CASE EVENT DATE: 20181030
